FAERS Safety Report 5025737-5 (Version None)
Quarter: 2006Q2

REPORT INFORMATION
  Report Type: 
  Country: None (occurrence: None)
  Receive Date: 20060427
  Receipt Date: 20051202
  Transmission Date: 20061013
  Serious: Yes (Hospitalization, Other)
  Sender: FDA-Public Use
  Company Number: 2005124980

PATIENT
  Age: 16 Year
  Sex: Female

DRUGS (7)
  1. ZITHROMAX [Suspect]
     Indication: UPPER RESPIRATORY TRACT INFECTION
     Dates: start: 20030303
  2. ACETAMINOPHEN [Concomitant]
  3. IBUPROFEN [Concomitant]
  4. ROBITUSSIN ^ROBINS^ (GUAIFENESIN) [Concomitant]
  5. CEFTRIAXONE [Concomitant]
  6. LIDOCAINE [Concomitant]
  7. DOPAMINE HCL [Concomitant]

REACTIONS (2)
  - STEVENS-JOHNSON SYNDROME [None]
  - TOXIC EPIDERMAL NECROLYSIS [None]
